FAERS Safety Report 4966213-5 (Version None)
Quarter: 2006Q2

REPORT INFORMATION
  Report Type: 
  Country: None (occurrence: None)
  Receive Date: 20060407
  Receipt Date: 20060309
  Transmission Date: 20061013
  Serious: Yes (Hospitalization)
  Sender: FDA-Public Use
  Company Number: 2006AP01134

PATIENT
  Age: 81 Year
  Sex: Male

DRUGS (5)
  1. MEROPEN [Suspect]
     Indication: DURAL ABSCESS
     Route: 041
     Dates: start: 20050706, end: 20050820
  2. ZONISAMIDE [Concomitant]
     Route: 048
  3. GASTER [Concomitant]
  4. ESPO [Concomitant]
  5. FERRUM [Concomitant]
     Route: 048

REACTIONS (1)
  - DERMATITIS EXFOLIATIVE [None]
